FAERS Safety Report 9742977 (Version 2)
Quarter: 2013Q4

REPORT INFORMATION
  Report Type: Spontaneous
  Country: US (occurrence: US)
  Receive Date: 20131210
  Receipt Date: 20131210
  Transmission Date: 20140711
  Serious: No
  Sender: FDA-Public Use
  Company Number: US-TEVA-371218USA

PATIENT
  Age: 73 Year
  Sex: Female

DRUGS (2)
  1. BUDESONIDE [Suspect]
     Dosage: 0.5 MG/2 ML; 1 VIAL TWICE A DAY; STOPPED TAKING IT AFTER 4 DAYS
     Dates: start: 201211, end: 201211
  2. BROVANA [Concomitant]

REACTIONS (4)
  - Dyspnoea [Unknown]
  - Cough [Unknown]
  - Drug ineffective [Unknown]
  - Inappropriate schedule of drug administration [Unknown]
